FAERS Safety Report 17229299 (Version 1)
Quarter: 2019Q4

REPORT INFORMATION
  Report Type: Spontaneous
  Country: US (occurrence: US)
  Receive Date: 20191210
  Receipt Date: 20191210
  Transmission Date: 20200122
  Serious: Yes (Other)
  Sender: FDA-Public Use
  Company Number: None

PATIENT
  Age: 45 Year
  Sex: Female

DRUGS (2)
  1. TADALAFIL 20MG [Suspect]
     Active Substance: TADALAFIL
     Indication: PULMONARY HYPERTENSION
     Route: 048
     Dates: start: 20190808
  2. LETAIRIS [Suspect]
     Active Substance: AMBRISENTAN
     Indication: OESOPHAGITIS
     Route: 048

REACTIONS (2)
  - Diarrhoea [None]
  - Nausea [None]
